FAERS Safety Report 7760239-4 (Version None)
Quarter: 2011Q3

REPORT INFORMATION
  Report Type: 
  Country: None (occurrence: None)
  Receive Date: 20110919
  Receipt Date: 20110912
  Transmission Date: 20111222
  Serious: Yes (Other)
  Sender: FDA-Public Use
  Company Number: US-GLAXOSMITHKLINE-A0944997A

PATIENT
  Age: 54 Year
  Sex: Female

DRUGS (6)
  1. ADVAIR DISKUS 100/50 [Suspect]
     Indication: ASTHMA
     Route: 055
     Dates: start: 20110101
  2. DARVOCET [Suspect]
     Indication: BACK PAIN
     Route: 048
  3. NICOTROL [Suspect]
     Indication: SMOKING CESSATION THERAPY
     Route: 055
     Dates: start: 20040101
  4. NICOTINE [Suspect]
     Indication: SMOKING CESSATION THERAPY
     Route: 062
  5. PROAIR HFA [Concomitant]
  6. MULTI-VITAMINS [Concomitant]

REACTIONS (10)
  - BLOOD CHOLESTEROL INCREASED [None]
  - WEIGHT INCREASED [None]
  - HYPERPHAGIA [None]
  - INTENTIONAL DRUG MISUSE [None]
  - TREATMENT NONCOMPLIANCE [None]
  - DRUG INEFFECTIVE [None]
  - MYOCARDIAL INFARCTION [None]
  - NICOTINE DEPENDENCE [None]
  - STRESS [None]
  - DYSPNOEA [None]
